FAERS Safety Report 7161283-0 (Version None)
Quarter: 2010Q4

REPORT INFORMATION
  Report Type: 
  Country: None (occurrence: None)
  Receive Date: 20101210
  Receipt Date: 20101210
  Transmission Date: 20110411
  Serious: Yes (Other)
  Sender: FDA-Public Use
  Company Number: None

PATIENT
  Age: 40 Year
  Sex: Female
  Weight: 69.4003 kg

DRUGS (1)
  1. VANCOMYCIN HCL [Suspect]
     Indication: CELLULITIS
     Dosage: 750MG Q12H IV DRIP
     Route: 041
     Dates: start: 20101019, end: 20101022

REACTIONS (2)
  - PRURITUS [None]
  - RASH [None]
